FAERS Safety Report 10187031 (Version 2)
Quarter: 2014Q2

REPORT INFORMATION
  Report Type: Spontaneous
  Country: DE (occurrence: DE)
  Receive Date: 20140522
  Receipt Date: 20140602
  Transmission Date: 20141212
  Serious: Yes (Hospitalization, Other)
  Sender: FDA-Public Use
  Company Number: DE-JNJFOC-20140512191

PATIENT
  Age: 39 Year
  Sex: Female
  Weight: 70 kg

DRUGS (4)
  1. XARELTO [Suspect]
     Indication: EMBOLISM VENOUS
     Route: 048
  2. XARELTO [Suspect]
     Indication: VENOUS THROMBOSIS
     Route: 048
  3. XARELTO [Suspect]
     Indication: PULMONARY EMBOLISM
     Route: 048
  4. PREDNISOLONE [Concomitant]
     Route: 065

REACTIONS (4)
  - Deep vein thrombosis [Unknown]
  - Jugular vein thrombosis [Unknown]
  - Subclavian vein thrombosis [Unknown]
  - Pelvic venous thrombosis [Unknown]
